FAERS Safety Report 25628605 (Version 1)
Quarter: 2025Q3

REPORT INFORMATION
  Report Type: Spontaneous
  Country: US (occurrence: US)
  Receive Date: 20250731
  Receipt Date: 20250731
  Transmission Date: 20251021
  Serious: No
  Sender: Tarsus Pharmaceuticals
  Company Number: US-TARSUS PHARMACEUTICALS-TSP-US-2025-000484

PATIENT

DRUGS (1)
  1. XDEMVY [Suspect]
     Active Substance: LOTILANER
     Indication: Product used for unknown indication
     Route: 065
     Dates: start: 202505, end: 202505

REACTIONS (5)
  - Hypoaesthesia oral [Unknown]
  - Swollen tongue [Unknown]
  - Dizziness [Unknown]
  - Dysphonia [Unknown]
  - Nausea [Unknown]

NARRATIVE: CASE EVENT DATE: 20250501
